FAERS Safety Report 18341465 (Version 3)
Quarter: 2020Q4

REPORT INFORMATION
  Report Type: Spontaneous
  Country: US (occurrence: US)
  Receive Date: 20201004
  Receipt Date: 20201109
  Transmission Date: 20210113
  Serious: Yes (Other)
  Sender: FDA-Public Use
  Company Number: US-SA-2020SA265732

PATIENT

DRUGS (2)
  1. HUMALOG [Concomitant]
     Active Substance: INSULIN LISPRO
     Dosage: WIRH EVERY MEAL
     Route: 065
  2. LANTUS SOLOSTAR [Suspect]
     Active Substance: INSULIN GLARGINE
     Dosage: 18 IU, (MORNING)
     Route: 065

REACTIONS (6)
  - Diabetes mellitus inadequate control [Unknown]
  - Cerebrovascular accident [Unknown]
  - Blood glucose increased [Unknown]
  - Blood glucose fluctuation [Unknown]
  - Device operational issue [Unknown]
  - Therapeutic product ineffective [Unknown]
